FAERS Safety Report 19922847 (Version 1)
Quarter: 2021Q4

REPORT INFORMATION
  Report Type: Spontaneous
  Country: US (occurrence: US)
  Receive Date: 20211005
  Receipt Date: 20211005
  Transmission Date: 20220303
  Serious: Yes (Disabling, Other)
  Sender: FDA-Public Use
  Company Number: None

PATIENT
  Age: 35 Year
  Sex: Female
  Weight: 60.75 kg

DRUGS (4)
  1. NUVIGIL [Suspect]
     Active Substance: ARMODAFINIL
     Indication: Narcolepsy
     Dosage: ?          QUANTITY:1 TABLET(S);
     Route: 048
     Dates: start: 20210915, end: 20211001
  2. NUVIGIL [Suspect]
     Active Substance: ARMODAFINIL
     Indication: Chronic fatigue syndrome
  3. ZALPIDEM [Concomitant]
  4. UNSPECIFIED INGREDIENT [Concomitant]
     Active Substance: UNSPECIFIED INGREDIENT

REACTIONS (10)
  - Illness [None]
  - Nausea [None]
  - Asthenia [None]
  - Somnolence [None]
  - Palpitations [None]
  - Palpitations [None]
  - Dyspnoea [None]
  - Feeling abnormal [None]
  - Vertigo [None]
  - Cerebrovascular accident [None]

NARRATIVE: CASE EVENT DATE: 20210915
